FAERS Safety Report 21670523 (Version 3)
Quarter: 2022Q4

REPORT INFORMATION
  Report Type: Report from Study
  Country: US (occurrence: US)
  Receive Date: 20221201
  Receipt Date: 20221208
  Transmission Date: 20230113
  Serious: No
  Sender: FDA-Public Use
  Company Number: US-ABBVIE-4220339

PATIENT
  Sex: Female

DRUGS (2)
  1. SKYRIZI [Suspect]
     Active Substance: RISANKIZUMAB-RZAA
     Indication: Psoriasis
     Dosage: STRENGTH- 150 MILLIGRAM
     Route: 058
     Dates: start: 202107
  2. IBUPROFEN [Concomitant]
     Active Substance: IBUPROFEN
     Indication: Headache

REACTIONS (4)
  - Road traffic accident [Recovered/Resolved]
  - Concussion [Unknown]
  - Pain [Recovering/Resolving]
  - Headache [Recovering/Resolving]

NARRATIVE: CASE EVENT DATE: 20220101
